FAERS Safety Report 4550252-2 (Version None)
Quarter: 2005Q1

REPORT INFORMATION
  Report Type: 
  Country: None (occurrence: None)
  Receive Date: 20050110
  Receipt Date: 20041228
  Transmission Date: 20050727
  Serious: Yes (Death)
  Sender: FDA-Public Use
  Company Number: HQWYE297630DEC04

PATIENT
  Age: 41 Year
  Sex: Female
  Weight: 84.9 kg

DRUGS (1)
  1. EFFEXOR [Suspect]
     Dosage: OVERDOSE AMOUNT, ORAL
     Route: 048

REACTIONS (3)
  - DRUG TOXICITY [None]
  - INTENTIONAL MISUSE [None]
  - LABORATORY TEST INTERFERENCE [None]
